FAERS Safety Report 9001897 (Version 1)
Quarter: 2013Q1

REPORT INFORMATION
  Report Type: Report from Study
  Country: DE (occurrence: DE)
  Receive Date: 20130107
  Receipt Date: 20130107
  Transmission Date: 20140127
  Serious: Yes (Hospitalization)
  Sender: FDA-Public Use
  Company Number: DE-ROCHE-1175917

PATIENT
  Age: 65 Year
  Sex: Male

DRUGS (3)
  1. ALTEPLASE [Suspect]
     Indication: ACUTE MYOCARDIAL INFARCTION
     Route: 042
  2. HEPARIN [Concomitant]
     Indication: ACUTE MYOCARDIAL INFARCTION
     Route: 065
     Dates: start: 19940623, end: 19940625
  3. ASA [Concomitant]

REACTIONS (3)
  - Angina pectoris [Unknown]
  - Chest pain [Recovered/Resolved]
  - Coronary artery stenosis [Recovered/Resolved]
